FAERS Safety Report 9157228 (Version 2)
Quarter: 2015Q3

REPORT INFORMATION
  Report Type: Spontaneous
  Country: RO (occurrence: RO)
  Receive Date: 20130312
  Receipt Date: 20150921
  Transmission Date: 20151125
  Serious: Yes (Other)
  Sender: FDA-Public Use
  Company Number: RO-BRISTOL-MYERS SQUIBB COMPANY-17279688

PATIENT
  Age: 28 Year
  Sex: Female

DRUGS (1)
  1. DASATINIB [Suspect]
     Active Substance: DASATINIB
     Indication: CHRONIC MYELOID LEUKAEMIA
     Dosage: 100 MG, QD
     Route: 048
     Dates: start: 201206, end: 201212

REACTIONS (2)
  - Maternal exposure during pregnancy [Recovered/Resolved]
  - Abortion induced [Unknown]

NARRATIVE: CASE EVENT DATE: 20121203
